FAERS Safety Report 17393737 (Version 1)
Quarter: 2020Q1

REPORT INFORMATION
  Report Type: Spontaneous
  Country: HR (occurrence: HR)
  Receive Date: 20200209
  Receipt Date: 20200209
  Transmission Date: 20200409
  Serious: Yes (Other)
  Sender: FDA-Public Use
  Company Number: HR-CELLTRION INC.-2020HR018349

PATIENT

DRUGS (1)
  1. RITUXIMAB (UNKNOWN) [Suspect]
     Active Substance: RITUXIMAB
     Indication: ANTI-NEUTROPHIL CYTOPLASMIC ANTIBODY POSITIVE VASCULITIS
     Dosage: UNK
     Route: 065

REACTIONS (2)
  - Anaphylactic reaction [Unknown]
  - Langerhans^ cell histiocytosis [Unknown]

NARRATIVE: CASE EVENT DATE: 20120518
